FAERS Safety Report 5538324-7 (Version None)
Quarter: 2007Q4

REPORT INFORMATION
  Report Type: 
  Country: None (occurrence: None)
  Receive Date: 20071205
  Receipt Date: 20071120
  Transmission Date: 20080405
  Serious: Yes (Hospitalization)
  Sender: FDA-Public Use
  Company Number: 2007S1000510

PATIENT
  Age: 8 Month
  Sex: Female

DRUGS (18)
  1. CUBICIN [Suspect]
     Indication: ENTEROCOCCAL BACTERAEMIA
     Dosage: 8 MG/KG; QD; IV
     Route: 042
     Dates: start: 20071108
  2. LINEZOLID [Concomitant]
  3. PIPERACILLIN SODIUM W/TAZOBACTAM [Concomitant]
  4. CHEMOTHERAPEUTICS NOS [Concomitant]
  5. FLUCONAZOLE [Concomitant]
  6. IMMUNE GLOBULIN INTRAVENOUS (HUMAN) [Concomitant]
  7. NEUPOGEN [Concomitant]
  8. METHYLPREDNISOLONE [Concomitant]
  9. METOCLOPRAMIDE [Concomitant]
  10. MORPHINE [Concomitant]
  11. DIPHENHYDRAMINE HCL [Concomitant]
  12. CALCIUM [Concomitant]
  13. NALOXONE [Concomitant]
  14. SIMETHICONE [Concomitant]
  15. ONDANSETRON [Concomitant]
  16. ISRADIPINE [Concomitant]
  17. LORAZEPAM [Concomitant]
  18. TYLENOL [Concomitant]

REACTIONS (1)
  - MENINGITIS ENTEROCOCCAL [None]
